FAERS Safety Report 10304965 (Version 2)
Quarter: 2014Q3

REPORT INFORMATION
  Report Type: Spontaneous
  Country: IT (occurrence: IT)
  Receive Date: 20140715
  Receipt Date: 20140715
  Transmission Date: 20150326
  Serious: Yes (Other)
  Sender: FDA-Public Use
  Company Number: IT-ACCORD-024394

PATIENT
  Age: 47 Year
  Sex: Female

DRUGS (5)
  1. TRIMETON [Concomitant]
     Active Substance: CHLORPHENIRAMINE MALEATE
     Indication: PREMEDICATION
     Dosage: 10 MG/ 1 ML SOLUTION FOR INJECTION- 5 VIAL 1 ML
     Route: 042
     Dates: start: 20140603, end: 20140624
  2. ACCORD PACLITAXEL [Suspect]
     Active Substance: PACLITAXEL
     Indication: OVARIAN CANCER
     Dosage: ^6 MG/ML CONCENTRATE FOR SOLUTION FOR INFUSION^ 1 VIAL GLASS 300 MG/50 ML.
     Route: 042
     Dates: start: 20140603, end: 20140603
  3. RANITIDINE HEXAL [Concomitant]
     Indication: PREMEDICATION
     Dosage: 50 MG/5 ML SOLUTION FOR INJECTION - 10 VIALS
     Route: 042
     Dates: start: 20140603, end: 20140624
  4. CARBOPLATIN TEVA [Concomitant]
     Active Substance: CARBOPLATIN
     Indication: PREMEDICATION
     Route: 042
     Dates: start: 20140603, end: 20140624
  5. GRANISETRON KABI [Concomitant]
     Active Substance: GRANISETRON
     Indication: PREMEDICATION
     Dosage: 1 MG/ ML CONCENTRATE FOR SOLUTION FOR INFUSION/INJECTION- 5 VIAL IN GLASS 3 ML
     Route: 042
     Dates: start: 20140603, end: 20140624

REACTIONS (4)
  - Choking sensation [Recovered/Resolved]
  - Abdominal pain [Unknown]
  - Hyperhidrosis [Recovered/Resolved]
  - Rash generalised [Recovered/Resolved]

NARRATIVE: CASE EVENT DATE: 20140603
